FAERS Safety Report 5114959-0 (Version None)
Quarter: 2006Q3

REPORT INFORMATION
  Report Type: 
  Country: None (occurrence: None)
  Receive Date: 20060921
  Receipt Date: 20060901
  Transmission Date: 20061208
  Serious: Yes (Other)
  Sender: FDA-Public Use
  Company Number: 2006RR-03726

PATIENT
  Sex: Male

DRUGS (4)
  1. CODEINE PHOSPHATE TABLET 15MG BP(CODEINE PHOSPHATE) UNKNOWN [Suspect]
  2. ALCOHOL(ETHANOL) [Suspect]
  3. ACETAMINOPHEN [Suspect]
  4. SEROTAX(PAROXETIN HYDROCHLORIDE) [Suspect]
     Dosage: 20 MG, QD
     Dates: start: 20021101

REACTIONS (5)
  - DRUG WITHDRAWAL SYNDROME [None]
  - ILL-DEFINED DISORDER [None]
  - MULTIPLE DRUG OVERDOSE [None]
  - SELF-INJURIOUS IDEATION [None]
  - SUICIDE ATTEMPT [None]
